FAERS Safety Report 4868251-X (Version None)
Quarter: 2005Q4

REPORT INFORMATION
  Report Type: 
  Country: None (occurrence: None)
  Receive Date: 20051229
  Receipt Date: 20051222
  Transmission Date: 20060501
  Serious: Yes (Death, Hospitalization)
  Sender: FDA-Public Use
  Company Number: US-SANOFI-SYNTHELABO-A03200504391

PATIENT
  Age: 63 Year
  Sex: Male

DRUGS (1)
  1. PLAVIX [Suspect]
     Indication: CARDIAC FAILURE
     Route: 048
     Dates: start: 20000101

REACTIONS (3)
  - DYSPNOEA [None]
  - MYOCARDIAL INFARCTION [None]
  - PULMONARY OEDEMA [None]
